FAERS Safety Report 5727560-2 (Version None)
Quarter: 2008Q2

REPORT INFORMATION
  Report Type: 
  Country: None (occurrence: None)
  Receive Date: 20080505
  Receipt Date: 20080423
  Transmission Date: 20081010
  Serious: Yes (Congenital Anomaly, Other)
  Sender: FDA-Public Use
  Company Number: GB-ABBOTT-05P-167-0292145-00

PATIENT
  Sex: Male
  Weight: 3.32 kg

DRUGS (1)
  1. VALPROIC ACID [Suspect]
     Indication: DRUG EXPOSURE DURING PREGNANCY
     Route: 064

REACTIONS (34)
  - ANISOMETROPIA [None]
  - ANTISOCIAL BEHAVIOUR [None]
  - ASTIGMATISM [None]
  - BALANCE DISORDER [None]
  - CONGENITAL ANOMALY [None]
  - CONGENITAL EYE DISORDER [None]
  - DEVELOPMENTAL COORDINATION DISORDER [None]
  - DEVELOPMENTAL DELAY [None]
  - DISTURBANCE IN ATTENTION [None]
  - DRUG EXPOSURE DURING PREGNANCY [None]
  - DYSMORPHISM [None]
  - EAR MALFORMATION [None]
  - FEEDING DISORDER NEONATAL [None]
  - FOETAL ANTICONVULSANT SYNDROME [None]
  - FOOT DEFORMITY [None]
  - HYPOKINESIA [None]
  - HYPOSPADIAS [None]
  - HYPOTONIA [None]
  - INGUINAL HERNIA [None]
  - LEARNING DISORDER [None]
  - LIGAMENT LAXITY [None]
  - LIP DISORDER [None]
  - LOOSE BODY IN JOINT [None]
  - MOTOR DYSFUNCTION [None]
  - MUSCLE SPASTICITY [None]
  - NIPPLE DISORDER [None]
  - OPTIC ATROPHY [None]
  - PERIVENTRICULAR LEUKOMALACIA [None]
  - RESPIRATORY RATE DECREASED [None]
  - SPEECH DISORDER DEVELOPMENTAL [None]
  - STRABISMUS [None]
  - SUPERNUMERARY NIPPLE [None]
  - SUTURE INSERTION [None]
  - VISUAL DISTURBANCE [None]
